FAERS Safety Report 10928652 (Version 2)
Quarter: 2015Q2

REPORT INFORMATION
  Report Type: Spontaneous
  Country: US (occurrence: US)
  Receive Date: 20150319
  Receipt Date: 20150524
  Transmission Date: 20150821
  Serious: No
  Sender: FDA-Public Use
  Company Number: US-JNJFOC-20140312095

PATIENT
  Age: 10 Year
  Sex: Male

DRUGS (1)
  1. CONCERTA [Suspect]
     Active Substance: METHYLPHENIDATE HYDROCHLORIDE
     Indication: HYPERTENSION
     Route: 048
     Dates: start: 201402, end: 201403

REACTIONS (10)
  - Restlessness [Not Recovered/Not Resolved]
  - Pruritus [Unknown]
  - Nervousness [Not Recovered/Not Resolved]
  - Anxiety [Unknown]
  - Muscle twitching [Not Recovered/Not Resolved]
  - Dizziness [Unknown]
  - Insomnia [Unknown]
  - Nightmare [Unknown]
  - Nausea [Unknown]
  - Vision blurred [Unknown]

NARRATIVE: CASE EVENT DATE: 201402
